FAERS Safety Report 9437321 (Version 3)
Quarter: 2013Q3

REPORT INFORMATION
  Report Type: Spontaneous
  Country: US (occurrence: US)
  Receive Date: 20130802
  Receipt Date: 20130826
  Transmission Date: 20140515
  Serious: No
  Sender: FDA-Public Use
  Company Number: US-009507513-1308USA000195

PATIENT
  Age: 16 Year
  Sex: Female
  Weight: 66.21 kg

DRUGS (2)
  1. NEXPLANON [Suspect]
     Indication: CONTRACEPTION
     Dosage: 3 YEAR IMPLANT
     Route: 059
     Dates: start: 20130617
  2. NEXPLANON [Suspect]
     Dosage: 3 YEAR IMPANT
     Route: 059
     Dates: start: 201308

REACTIONS (4)
  - Device deployment issue [Not Recovered/Not Resolved]
  - Implant site erythema [Not Recovered/Not Resolved]
  - Product quality issue [Unknown]
  - Limb discomfort [Not Recovered/Not Resolved]
